FAERS Safety Report 7487744-2 (Version None)
Quarter: 2011Q2

REPORT INFORMATION
  Report Type: 
  Country: None (occurrence: None)
  Receive Date: 20110518
  Receipt Date: 20110509
  Transmission Date: 20111010
  Serious: Yes (Hospitalization)
  Sender: FDA-Public Use
  Company Number: PHHY2011US39306

PATIENT
  Sex: Male

DRUGS (2)
  1. TASIGNA [Suspect]
     Indication: CHRONIC MYELOID LEUKAEMIA
     Dosage: 400 MG, BID
     Route: 048
     Dates: start: 20110311
  2. GLEEVEC [Suspect]
     Dosage: UNK
     Route: 048
     Dates: start: 20080905, end: 20110324

REACTIONS (2)
  - DRUG HYPERSENSITIVITY [None]
  - CLOSTRIDIAL INFECTION [None]
